FAERS Safety Report 18463237 (Version 1)
Quarter: 2020Q4

REPORT INFORMATION
  Report Type: Spontaneous
  Country: US (occurrence: US)
  Receive Date: 20201104
  Receipt Date: 20201104
  Transmission Date: 20210114
  Serious: Yes (Other)
  Sender: FDA-Public Use
  Company Number: US-MYLANLABS-2020M1092426

PATIENT
  Age: 80 Year
  Sex: Male

DRUGS (6)
  1. LEVOTHYROXINE. [Concomitant]
     Active Substance: LEVOTHYROXINE
     Indication: PRODUCT USED FOR UNKNOWN INDICATION
     Route: 065
  2. BCG [Concomitant]
     Active Substance: BCG VACCINE
     Indication: BLADDER CANCER RECURRENT
     Route: 065
  3. IMATINIB. [Suspect]
     Active Substance: IMATINIB MESYLATE
     Indication: GASTROINTESTINAL STROMAL TUMOUR
  4. IMATINIB. [Suspect]
     Active Substance: IMATINIB MESYLATE
     Indication: RECURRENT CANCER
  5. ASPIRIN                            /00002701/ [Concomitant]
     Active Substance: ASPIRIN
     Indication: PRODUCT USED FOR UNKNOWN INDICATION
     Route: 065
  6. IMATINIB. [Suspect]
     Active Substance: IMATINIB MESYLATE
     Indication: ADJUVANT THERAPY
     Dosage: 800 MILLIGRAM, QD
     Route: 065
     Dates: start: 201809

REACTIONS (2)
  - Pemphigus [Recovered/Resolved]
  - Disease recurrence [Recovered/Resolved]
